FAERS Safety Report 7643476-9 (Version None)
Quarter: 2011Q3

REPORT INFORMATION
  Report Type: 
  Country: None (occurrence: None)
  Receive Date: 20110729
  Receipt Date: 20110707
  Transmission Date: 20111222
  Serious: Yes (Hospitalization, Other)
  Sender: FDA-Public Use
  Company Number: US-BAYER-2011-017607

PATIENT
  Age: 20 Year
  Sex: Female
  Weight: 72.562 kg

DRUGS (11)
  1. YAZ [Suspect]
     Indication: ACNE
     Dosage: UNK
     Route: 048
     Dates: start: 20080801, end: 20091001
  2. PLAVIX [Concomitant]
     Indication: THROMBOSIS PROPHYLAXIS
  3. RIFAMPIN [Concomitant]
  4. YAZ [Suspect]
     Indication: ORAL CONTRACEPTION
  5. DEXPAK [Concomitant]
     Indication: INFECTIOUS MONONUCLEOSIS
  6. IBUPROFEN [Concomitant]
  7. BACTRIM [Concomitant]
  8. DIGOXIN [Concomitant]
     Indication: CARDIAC DISORDER
  9. ASPIRIN [Concomitant]
  10. HYDROXYUREA [Concomitant]
  11. SINGULAIR [Concomitant]

REACTIONS (3)
  - SPLENIC INFARCTION [None]
  - TACHYCARDIA [None]
  - PULMONARY EMBOLISM [None]
